FAERS Safety Report 13020515 (Version 1)
Quarter: 2016Q4

REPORT INFORMATION
  Report Type: Spontaneous
  Country: US (occurrence: US)
  Receive Date: 20161212
  Receipt Date: 20161212
  Transmission Date: 20170207
  Serious: Yes (Death, Life-Threatening, Hospitalization)
  Sender: FDA-Public Use
  Company Number: US-UNITED THERAPEUTICS-UNT-2016-018515

PATIENT
  Sex: Female

DRUGS (1)
  1. TYVASO [Suspect]
     Active Substance: TREPROSTINIL
     Indication: ACUTE RESPIRATORY DISTRESS SYNDROME
     Dosage: UNK
     Dates: start: 20160816, end: 20160818

REACTIONS (4)
  - Oxygen saturation decreased [Recovered/Resolved]
  - Blood sodium decreased [Fatal]
  - Respiratory failure [Fatal]
  - Hypotension [Fatal]

NARRATIVE: CASE EVENT DATE: 20160817
